FAERS Safety Report 13045417 (Version 1)
Quarter: 2016Q4

REPORT INFORMATION
  Report Type: Report from Study
  Country: US (occurrence: US)
  Receive Date: 20161220
  Receipt Date: 20161220
  Transmission Date: 20170207
  Serious: No
  Sender: FDA-Public Use
  Company Number: US-ALEXION PHARMACEUTICALS INC.-A201609790

PATIENT
  Sex: Female

DRUGS (1)
  1. SOLIRIS [Suspect]
     Active Substance: ECULIZUMAB
     Indication: PAROXYSMAL NOCTURNAL HAEMOGLOBINURIA
     Dosage: 900 MG, Q2W
     Route: 042
     Dates: start: 20121219, end: 20161128

REACTIONS (6)
  - Pharyngeal paraesthesia [Unknown]
  - Stress [Unknown]
  - Cough [Unknown]
  - Nasopharyngitis [Unknown]
  - Respiratory symptom [Unknown]
  - Vomiting [Unknown]

NARRATIVE: CASE EVENT DATE: 20161201
